FAERS Safety Report 7306440-5 (Version None)
Quarter: 2011Q1

REPORT INFORMATION
  Report Type: 
  Country: None (occurrence: None)
  Receive Date: 20110119
  Receipt Date: 20101001
  Transmission Date: 20110831
  Serious: Yes (Other)
  Sender: FDA-Public Use
  Company Number: A-US2010-40302

PATIENT
  Age: 75 Year
  Sex: Female

DRUGS (1)
  1. TRACLEER [Suspect]
     Indication: PULMONARY ARTERIAL HYPERTENSION
     Dosage: ORAL
     Route: 048
     Dates: start: 20100708

REACTIONS (6)
  - PULMONARY ARTERIAL HYPERTENSION [None]
  - FLUID RETENTION [None]
  - YELLOW SKIN [None]
  - PAIN [None]
  - NASAL DISCOMFORT [None]
  - DYSPNOEA [None]
